FAERS Safety Report 8607419 (Version 3)
Quarter: 2014Q1

REPORT INFORMATION
  Report Type: Spontaneous
  Country: US (occurrence: US)
  Receive Date: 20120611
  Receipt Date: 20140113
  Transmission Date: 20141002
  Serious: Yes (Hospitalization, Disabling)
  Sender: FDA-Public Use
  Company Number: US-ASTRAZENECA-2012SE35222

PATIENT
  Age: 55 Year
  Sex: Female
  Weight: 122.5 kg

DRUGS (12)
  1. NEXIUM [Suspect]
     Indication: GASTROOESOPHAGEAL REFLUX DISEASE
     Dosage: ONCE PER DAY
     Route: 048
     Dates: start: 200404, end: 2011
  2. NEXIUM [Suspect]
     Indication: GASTROOESOPHAGEAL REFLUX DISEASE
     Route: 048
     Dates: start: 20080605
  3. OMEPRAZOLE [Suspect]
     Indication: GASTROOESOPHAGEAL REFLUX DISEASE
     Route: 048
  4. ZANTAC [Concomitant]
     Indication: DYSPEPSIA
     Dates: start: 2004
  5. CALCIUM [Concomitant]
     Dates: start: 2004
  6. ESTRADIOL [Concomitant]
     Dosage: 0.05
     Dates: start: 2004
  7. VITAMIN D [Concomitant]
     Indication: VITAMIN D DEFICIENCY
     Dosage: 0.05
     Dates: start: 2004
  8. SERTRALINE HCL [Concomitant]
     Dosage: 100
     Dates: start: 20080502
  9. SINGULAIR [Concomitant]
     Dates: start: 20080502
  10. CYCLOBENZAPRINE [Concomitant]
     Dosage: 10
     Dates: start: 20080606
  11. TRIAMTERENE/HCTZ [Concomitant]
     Dates: start: 20080606
  12. ALPRAZOLAM [Concomitant]
     Dates: start: 20080606

REACTIONS (15)
  - Obesity [Unknown]
  - Pneumonia [Unknown]
  - Osteoporosis [Unknown]
  - Multiple fractures [Unknown]
  - Foot fracture [Unknown]
  - Lung disorder [Unknown]
  - Bone pain [Unknown]
  - Bone disorder [Unknown]
  - Arthritis [Unknown]
  - Thyroid disorder [Unknown]
  - Hypothyroidism [Unknown]
  - Limb injury [Unknown]
  - Bronchitis [Unknown]
  - Asthma [Unknown]
  - Depression [Unknown]
